FAERS Safety Report 23673463 (Version 1)
Quarter: 2024Q1

REPORT INFORMATION
  Report Type: Spontaneous
  Country: US (occurrence: None)
  Receive Date: 20240325
  Receipt Date: 20240325
  Transmission Date: 20240410
  Serious: No
  Sender: FDA-Public Use
  Company Number: None

PATIENT
  Sex: 0

DRUGS (2)
  1. MAGNESIUM SULFATE IN WATER [Suspect]
     Active Substance: MAGNESIUM SULFATE HEPTAHYDRATE
     Route: 040
  2. SODIUM CHLORIDE [Suspect]
     Active Substance: SODIUM CHLORIDE
     Route: 040

REACTIONS (4)
  - Product appearance confusion [None]
  - Product packaging issue [None]
  - Product selection error [None]
  - Wrong product administered [None]
